FAERS Safety Report 10955345 (Version 2)
Quarter: 2015Q2

REPORT INFORMATION
  Report Type: Spontaneous
  Country: KR (occurrence: KR)
  Receive Date: 20150326
  Receipt Date: 20150402
  Transmission Date: 20150821
  Serious: Yes (Other)
  Sender: FDA-Public Use
  Company Number: KR-ROCHE-1556544

PATIENT
  Age: 30 Month

DRUGS (1)
  1. TAMIFLU [Suspect]
     Active Substance: OSELTAMIVIR PHOSPHATE
     Indication: INFLUENZA
     Route: 048

REACTIONS (5)
  - Abnormal behaviour [Recovered/Resolved]
  - Agitation [Recovered/Resolved]
  - Mood swings [Recovered/Resolved]
  - Lethargy [Recovered/Resolved]
  - Delirium [Recovered/Resolved]

NARRATIVE: CASE EVENT DATE: 20150325
